FAERS Safety Report 9236400 (Version 1)
Quarter: 2013Q2

REPORT INFORMATION
  Report Type: Spontaneous
  Country: GB (occurrence: GB)
  Receive Date: 20130417
  Receipt Date: 20130417
  Transmission Date: 20140414
  Serious: Yes (Hospitalization, Disabling, Other)
  Sender: FDA-Public Use
  Company Number: GB-ASTRAZENECA-2013SE22944

PATIENT
  Age: 49 Year
  Sex: Male

DRUGS (3)
  1. BRILIQUE [Suspect]
     Indication: STENT PLACEMENT
     Route: 048
  2. ASPIRIN [Concomitant]
     Indication: STENT PLACEMENT
     Route: 065
  3. ANTIPLATELET DRUGS [Concomitant]

REACTIONS (3)
  - Photophobia [Unknown]
  - Headache [Unknown]
  - Intracranial haematoma [Not Recovered/Not Resolved]
